FAERS Safety Report 9137461 (Version 1)
Quarter: 2013Q1

REPORT INFORMATION
  Report Type: Spontaneous
  Country: GR (occurrence: GR)
  Receive Date: 20130304
  Receipt Date: 20130304
  Transmission Date: 20140127
  Serious: Yes (Other)
  Sender: FDA-Public Use
  Company Number: GR-MERCK-1303GRC000133

PATIENT
  Age: 82 Year
  Sex: Female
  Weight: 58 kg

DRUGS (10)
  1. JANUMET [Suspect]
     Indication: TYPE 2 DIABETES MELLITUS
     Route: 048
     Dates: end: 20121219
  2. CAPOTEN [Concomitant]
  3. SINEMET [Concomitant]
  4. OMEPRAZOLE [Concomitant]
  5. FOSAVANCE [Concomitant]
  6. DIGOXIN [Concomitant]
  7. LASIX (FUROSEMIDE) [Concomitant]
  8. FORADIL [Concomitant]
  9. MIFLONIDE [Concomitant]
  10. SPIRIVA [Concomitant]

REACTIONS (1)
  - Muscle spasms [Recovered/Resolved]
